FAERS Safety Report 20389188 (Version 3)
Quarter: 2022Q1

REPORT INFORMATION
  Report Type: Spontaneous
  Country: US (occurrence: US)
  Receive Date: 20220128
  Receipt Date: 20220303
  Transmission Date: 20220424
  Serious: Yes (Other)
  Sender: FDA-Public Use
  Company Number: US-JNJFOC-20220137414

PATIENT
  Age: 61 Year
  Sex: Female

DRUGS (2)
  1. ELMIRON [Suspect]
     Active Substance: PENTOSAN POLYSULFATE SODIUM
     Indication: Cystitis interstitial
     Dosage: 100 MG CAPSULE - 2 PILLS IN THE MORNING AND 1 PILL IN THE EVENING
     Route: 048
     Dates: start: 20151029, end: 20170119
  2. ELMIRON [Suspect]
     Active Substance: PENTOSAN POLYSULFATE SODIUM
     Route: 048
     Dates: end: 201702

REACTIONS (6)
  - Vitreous detachment [Unknown]
  - Retinal injury [Unknown]
  - Epiretinal membrane [Unknown]
  - Cataract [Unknown]
  - Inappropriate schedule of product administration [Unknown]
  - Off label use [Unknown]

NARRATIVE: CASE EVENT DATE: 20151029
